FAERS Safety Report 22012636 (Version 1)
Quarter: 2023Q1

REPORT INFORMATION
  Report Type: Spontaneous
  Country: US (occurrence: US)
  Receive Date: 20230220
  Receipt Date: 20230220
  Transmission Date: 20230418
  Serious: No
  Sender: FDA-Public Use
  Company Number: US-AURINIA PHARMACEUTICALS INC.-AUR-002141

PATIENT
  Sex: Female

DRUGS (2)
  1. LUPKYNIS [Suspect]
     Active Substance: VOCLOSPORIN
     Indication: Lupus nephritis
     Dosage: 23.7 MILLIGRAM, BID
     Route: 048
     Dates: start: 20220616, end: 202208
  2. LUPKYNIS [Suspect]
     Active Substance: VOCLOSPORIN
     Dosage: ONCE IN THE MORNING AND ONCE IN THE AFTERNOON
     Route: 048
     Dates: start: 202209

REACTIONS (5)
  - Abdominal discomfort [Unknown]
  - Back pain [Unknown]
  - Renal disorder [Unknown]
  - Laboratory test abnormal [Unknown]
  - Diarrhoea [Unknown]
